FAERS Safety Report 17086886 (Version 1)
Quarter: 2019Q4

REPORT INFORMATION
  Report Type: Spontaneous
  Country: US (occurrence: US)
  Receive Date: 20191031
  Receipt Date: 20191031
  Transmission Date: 20200122
  Serious: Yes (Hospitalization)
  Sender: FDA-Public Use
  Company Number: None

PATIENT
  Age: 74 Year
  Sex: Male
  Weight: 72.12 kg

DRUGS (1)
  1. APIXABAN [Suspect]
     Active Substance: APIXABAN
     Route: 048

REACTIONS (4)
  - Transient ischaemic attack [None]
  - Cerebrovascular accident [None]
  - Haemorrhagic stroke [None]
  - Basal ganglia haemorrhage [None]

NARRATIVE: CASE EVENT DATE: 20190914
